FAERS Safety Report 7805299-7 (Version None)
Quarter: 2011Q4

REPORT INFORMATION
  Report Type: 
  Country: None (occurrence: None)
  Receive Date: 20111010
  Receipt Date: 20111003
  Transmission Date: 20120403
  Serious: Yes (Other)
  Sender: FDA-Public Use
  Company Number: US-PFIZER INC-2011236234

PATIENT
  Sex: Female

DRUGS (3)
  1. GLIPIZIDE [Suspect]
     Dosage: UNK
  2. LIRAGLUTIDE (NN2211) [Suspect]
     Dosage: UNK
  3. INSULIN DETEMIR [Suspect]
     Dosage: UNK

REACTIONS (7)
  - BURNING SENSATION [None]
  - HEADACHE [None]
  - DIARRHOEA [None]
  - ABDOMINAL PAIN UPPER [None]
  - DECREASED APPETITE [None]
  - BLOOD GLUCOSE INCREASED [None]
  - NAUSEA [None]
